FAERS Safety Report 4473291-9 (Version None)
Quarter: 2004Q3

REPORT INFORMATION
  Report Type: 
  Country: None (occurrence: None)
  Receive Date: 20040917
  Receipt Date: 20040623
  Transmission Date: 20050211
  Serious: No
  Sender: FDA-Public Use
  Company Number: US-JNJFOC-20040607000

PATIENT
  Age: 50 Year
  Sex: Female
  Weight: 62.1428 kg

DRUGS (2)
  1. ORTHO EVRA [Suspect]
     Indication: MENSTRUATION IRREGULAR
     Dosage: 1 DOSE(S), 3 IN 4 WEEK, TRANSDERMAL
     Route: 062
     Dates: start: 20031001
  2. ATARAX [Concomitant]

REACTIONS (3)
  - DYSURIA [None]
  - MENORRHAGIA [None]
  - MICTURITION URGENCY [None]
